FAERS Safety Report 12072289 (Version 1)
Quarter: 2016Q1

REPORT INFORMATION
  Report Type: Spontaneous
  Country: CA (occurrence: CA)
  Receive Date: 20160212
  Receipt Date: 20160212
  Transmission Date: 20160526
  Serious: Yes (Death)
  Sender: FDA-Public Use
  Company Number: CA-TEVA-633668USA

PATIENT
  Age: 32 Year
  Sex: Female

DRUGS (1)
  1. TEVA-FENTANYL 50MCG [Suspect]
     Active Substance: FENTANYL
     Indication: PRODUCT USED FOR UNKNOWN INDICATION
     Route: 055

REACTIONS (6)
  - Intentional product misuse [Unknown]
  - Incorrect route of drug administration [Unknown]
  - Drug diversion [Unknown]
  - Overdose [Fatal]
  - Drug abuse [Unknown]
  - Death [Fatal]

NARRATIVE: CASE EVENT DATE: 20160125
